FAERS Safety Report 13596716 (Version 1)
Quarter: 2017Q2

REPORT INFORMATION
  Report Type: Spontaneous
  Country: US (occurrence: US)
  Receive Date: 20170531
  Receipt Date: 20170531
  Transmission Date: 20170830
  Serious: No
  Sender: FDA-Public Use
  Company Number: US-PFIZER INC-2017236633

PATIENT
  Age: 77 Year
  Sex: Female

DRUGS (1)
  1. XELJANZ XR [Suspect]
     Active Substance: TOFACITINIB CITRATE
     Dosage: 1 TABLET (11 MG), DAILY
     Route: 048

REACTIONS (2)
  - Visual impairment [Unknown]
  - Rash pruritic [Unknown]
